FAERS Safety Report 5752454-6 (Version None)
Quarter: 2008Q2

REPORT INFORMATION
  Report Type: 
  Country: None (occurrence: None)
  Receive Date: 20080527
  Receipt Date: 20080527
  Transmission Date: 20081010
  Serious: No
  Sender: FDA-Public Use
  Company Number: None

PATIENT
  Sex: Male
  Weight: 90.7194 kg

DRUGS (1)
  1. NITRO-DUR [Suspect]
     Indication: ANGINA PECTORIS
     Dosage: 0.6MG/HR DAILY TRANSDERMAL
     Route: 062
     Dates: start: 20080301, end: 20080508

REACTIONS (2)
  - DEVICE FAILURE [None]
  - PHARMACEUTICAL PRODUCT COMPLAINT [None]
